FAERS Safety Report 10135829 (Version 1)
Quarter: 2014Q2

REPORT INFORMATION
  Report Type: Spontaneous
  Country: US (occurrence: US)
  Receive Date: 20140429
  Receipt Date: 20140429
  Transmission Date: 20141212
  Serious: Yes (Other)
  Sender: FDA-Public Use
  Company Number: US-AMGEN INC.-USASP2014029845

PATIENT
  Age: 60 Year
  Sex: Male

DRUGS (1)
  1. ENBREL [Suspect]
     Indication: PSORIASIS
     Dosage: 50 MG, 2 TIMES/WK
     Route: 065

REACTIONS (7)
  - Squamous cell carcinoma [Not Recovered/Not Resolved]
  - Ulcer [Not Recovered/Not Resolved]
  - Skin lesion [Not Recovered/Not Resolved]
  - Sleep apnoea syndrome [Unknown]
  - Glycosylated haemoglobin increased [Not Recovered/Not Resolved]
  - Fatigue [Unknown]
  - Psoriasis [Not Recovered/Not Resolved]
